FAERS Safety Report 19515630 (Version 1)
Quarter: 2021Q3

REPORT INFORMATION
  Report Type: Spontaneous
  Country: TR (occurrence: TR)
  Receive Date: 20210709
  Receipt Date: 20210709
  Transmission Date: 20211014
  Serious: Yes (Other)
  Sender: FDA-Public Use
  Company Number: TR-ELI_LILLY_AND_COMPANY-TR202107000522

PATIENT
  Age: 17 Year
  Sex: Female

DRUGS (1)
  1. COPELLOR [Suspect]
     Active Substance: IXEKIZUMAB
     Indication: PRODUCT USED FOR UNKNOWN INDICATION
     Dosage: UNK, UNKNOWN
     Route: 065

REACTIONS (4)
  - Injection site hypersensitivity [Unknown]
  - Injection site pruritus [Unknown]
  - Injection site erythema [Unknown]
  - Rash maculo-papular [Unknown]
